FAERS Safety Report 15558504 (Version 1)
Quarter: 2018Q4

REPORT INFORMATION
  Report Type: Spontaneous
  Country: DE (occurrence: DE)
  Receive Date: 20181028
  Receipt Date: 20181028
  Transmission Date: 20190205
  Serious: Yes (Hospitalization, Other)
  Sender: FDA-Public Use
  Company Number: DE-ASTRAZENECA-2018SF39592

PATIENT
  Age: 70 Year
  Sex: Male

DRUGS (6)
  1. RAMILICH [Concomitant]
     Active Substance: RAMIPRIL
  2. TICAGRELOR. [Suspect]
     Active Substance: TICAGRELOR
     Indication: STENT PLACEMENT
     Route: 048
  3. ASPIRIN. [Concomitant]
     Active Substance: ASPIRIN
  4. SIMVASTATIN. [Concomitant]
     Active Substance: SIMVASTATIN
  5. METFORMIN [Concomitant]
     Active Substance: METFORMIN HYDROCHLORIDE
  6. METOHEXAL [Concomitant]
     Active Substance: METOPROLOL

REACTIONS (3)
  - Carotid arteriosclerosis [Unknown]
  - Cerebral disorder [Recovered/Resolved with Sequelae]
  - Chest pain [Not Recovered/Not Resolved]

NARRATIVE: CASE EVENT DATE: 20181015
